FAERS Safety Report 7772514 (Version 4)
Quarter: 2022Q2

REPORT INFORMATION
  Report Type: Report from Study
  Country: DE (occurrence: DE)
  Receive Date: 20110125
  Receipt Date: 20220408
  Transmission Date: 20220720
  Serious: Yes (Death, Life-Threatening, Hospitalization, Other)
  Sender: FDA-Public Use
  Company Number: DE-SHIRE-SPV1-2011-00062

PATIENT
  Age: 18 Year
  Sex: Male
  Weight: 38 kg

DRUGS (5)
  1. IDURSULFASE [Suspect]
     Active Substance: IDURSULFASE
     Indication: Mucopolysaccharidosis II
     Dosage: 18 MILLIGRAM, 1/WEEK
     Route: 041
     Dates: start: 20060906
  2. IDURSULFASE [Suspect]
     Active Substance: IDURSULFASE
     Dosage: 0.64 MILLIGRAM/KILOGRAM, 1/WEEK
     Route: 042
     Dates: start: 20060906
  3. IDURSULFASE [Suspect]
     Active Substance: IDURSULFASE
     Dosage: 24 MILLIGRAM, 1/WEEK
     Route: 041
     Dates: start: 20080910
  4. IDURSULFASE [Suspect]
     Active Substance: IDURSULFASE
     Dosage: 0.63 MILLIGRAM/KILOGRAM, 1/WEEK
     Route: 042
     Dates: start: 20080910
  5. ACETAZOLAMIDE [Concomitant]
     Active Substance: ACETAZOLAMIDE
     Indication: Glaucoma
     Dosage: 150 MG, 1X/DAY:QD
     Route: 048
     Dates: start: 20090114

REACTIONS (5)
  - Respiratory failure [Fatal]
  - Dyspnoea [Fatal]
  - Cough [Fatal]
  - Respiratory distress [Unknown]
  - Tracheal obstruction [Unknown]

NARRATIVE: CASE EVENT DATE: 20100309
